FAERS Safety Report 17352475 (Version 1)
Quarter: 2020Q1

REPORT INFORMATION
  Report Type: Report from Study
  Country: NL (occurrence: NL)
  Receive Date: 20200131
  Receipt Date: 20200131
  Transmission Date: 20200409
  Serious: Yes (Other)
  Sender: FDA-Public Use
  Company Number: NL-TEVA-2020-NL-1177264

PATIENT
  Age: 19 Year
  Sex: Female

DRUGS (3)
  1. PREDNISON [Suspect]
     Active Substance: PREDNISONE
     Indication: CROHN^S DISEASE
     Dosage: 1 DOSAGE FORM
     Dates: start: 20030101, end: 20030201
  2. TIOGUANINE [Concomitant]
     Active Substance: THIOGUANINE ANHYDROUS
     Dosage: 20MG
     Dates: start: 20030101, end: 20040101
  3. INFLIXIMAB - REMICADE [Concomitant]
     Dosage: 1 DOSAGE FORM
     Dates: start: 20030101, end: 20040101

REACTIONS (5)
  - Tendon rupture [Recovered/Resolved]
  - Skin striae [Recovered/Resolved]
  - Myopathy [Recovered/Resolved]
  - Cushing^s syndrome [Recovered/Resolved]
  - Weight increased [Recovered/Resolved]

NARRATIVE: CASE EVENT DATE: 20030201
